FAERS Safety Report 21202241 (Version 1)
Quarter: 2022Q3

REPORT INFORMATION
  Report Type: Spontaneous
  Country: CN (occurrence: CN)
  Receive Date: 20220811
  Receipt Date: 20220811
  Transmission Date: 20221027
  Serious: Yes (Other)
  Sender: FDA-Public Use
  Company Number: CN-009507513-2208CHN003956

PATIENT
  Age: 68 Year
  Sex: Male

DRUGS (3)
  1. KEYTRUDA [Suspect]
     Active Substance: PEMBROLIZUMAB
     Indication: Lung adenocarcinoma
     Dosage: 200 MG, CYCLIAL, ONCE
     Route: 041
     Dates: start: 20220618, end: 20220618
  2. PEMETREXED DISODIUM [Suspect]
     Active Substance: PEMETREXED DISODIUM
     Indication: Lung adenocarcinoma
     Dosage: 0.75 G, CYCLICAL, ONCE
     Route: 041
     Dates: start: 20220614, end: 20220615
  3. NEDAPLATIN [Suspect]
     Active Substance: NEDAPLATIN
     Indication: Lung adenocarcinoma
     Dosage: 120 MG, CYCLICAL, ONCE
     Route: 041
     Dates: start: 20220614, end: 20220615

REACTIONS (1)
  - Myelosuppression [Recovering/Resolving]

NARRATIVE: CASE EVENT DATE: 20220620
